FAERS Safety Report 8106622 (Version 4)
Quarter: 2014Q3

REPORT INFORMATION
  Report Type: Spontaneous
  Country: US (occurrence: US)
  Receive Date: 20110825
  Receipt Date: 20140718
  Transmission Date: 20150326
  Serious: Yes (Death, Hospitalization)
  Sender: FDA-Public Use
  Company Number: US-GLAXOSMITHKLINE-A0942040A

PATIENT
  Age: 69 Year
  Sex: Female

DRUGS (1)
  1. AVANDIA [Suspect]
     Active Substance: ROSIGLITAZONE MALEATE
     Indication: DIABETES MELLITUS
     Dosage: 4MG TWICE PER DAY
     Route: 048
     Dates: start: 20000414, end: 20001011

REACTIONS (4)
  - Cerebrovascular accident [Unknown]
  - Cerebral infarction [Unknown]
  - Cerebral thrombosis [Unknown]
  - Pneumonia [Fatal]

NARRATIVE: CASE EVENT DATE: 200104
